FAERS Safety Report 15190906 (Version 1)
Quarter: 2018Q3

REPORT INFORMATION
  Report Type: Spontaneous
  Country: GB (occurrence: GB)
  Receive Date: 20180724
  Receipt Date: 20180724
  Transmission Date: 20181010
  Serious: Yes (Other)
  Sender: FDA-Public Use
  Company Number: GB-TEVA-2018-GB-929254

PATIENT
  Age: 34 Year
  Sex: Female
  Weight: 96 kg

DRUGS (10)
  1. IBUPROFEN. [Suspect]
     Active Substance: IBUPROFEN
     Route: 065
     Dates: start: 20180613
  2. TRAMADOL. [Concomitant]
     Active Substance: TRAMADOL
     Dosage: TAKE 1 OR 2 UP TO FOUR TIMES DAILY
     Route: 065
     Dates: start: 20180415, end: 20180419
  3. VENTOLIN [Concomitant]
     Active Substance: ALBUTEROL SULFATE
     Route: 055
     Dates: start: 20180314
  4. MONTELUKAST [Concomitant]
     Active Substance: MONTELUKAST SODIUM
     Dosage: 1 DOSAGE FORMS DAILY; AT NIGHT TO PREVENT CHEST SYMPTOMS
     Route: 065
     Dates: start: 20180314
  5. ESTRADIOL VALERATE. [Concomitant]
     Active Substance: ESTRADIOL VALERATE
     Dosage: 4 DOSAGE FORMS DAILY;
     Route: 065
     Dates: start: 20180314
  6. DIHYDROCODEINE [Concomitant]
     Active Substance: DIHYDROCODEINE
     Dosage: TAKE ONE OR TWO UP TO FOUR TIMES DAILY
     Route: 065
     Dates: start: 20180613
  7. HYOSCINE BUTYLBROMIDE [Concomitant]
     Active Substance: BUTYLSCOPOLAMINE
     Dosage: 8 DOSAGE FORMS DAILY;
     Route: 065
     Dates: start: 20180415, end: 20180422
  8. LAMOTRIGINE. [Concomitant]
     Active Substance: LAMOTRIGINE
     Dosage: 4 DOSAGE FORMS DAILY;
     Route: 065
     Dates: start: 20180314
  9. FOSTAIR [Concomitant]
     Active Substance: BECLOMETHASONE\FORMOTEROL
     Indication: ASTHMA
     Dosage: 4 DOSAGE FORMS DAILY; PUFFS
     Route: 065
     Dates: start: 20180314
  10. SERTRALINE [Concomitant]
     Active Substance: SERTRALINE HYDROCHLORIDE
     Dosage: 1 DOSAGE FORMS DAILY;
     Route: 065
     Dates: start: 20180509

REACTIONS (1)
  - Asthma [Recovered/Resolved]

NARRATIVE: CASE EVENT DATE: 20180613
